FAERS Safety Report 14528999 (Version 5)
Quarter: 2019Q2

REPORT INFORMATION
  Report Type: Spontaneous
  Country: US (occurrence: US)
  Receive Date: 20180214
  Receipt Date: 20190404
  Transmission Date: 20190711
  Serious: Yes (Hospitalization)
  Sender: FDA-Public Use
  Company Number: US-PFIZER INC-2018059379

PATIENT
  Age: 45 Year
  Sex: Female
  Weight: 65.77 kg

DRUGS (4)
  1. PREMARIN [Suspect]
     Active Substance: ESTROGENS, CONJUGATED
     Indication: VULVOVAGINAL DRYNESS
     Dosage: UNK
     Route: 067
  2. PREMARIN [Suspect]
     Active Substance: ESTROGENS, CONJUGATED
     Indication: BLADDER DISORDER
  3. PREMARIN [Suspect]
     Active Substance: ESTROGENS, CONJUGATED
     Indication: VULVOVAGINAL DISCOMFORT
     Dosage: 0.625 MG, DAILY, [0.625MG APPLY WITH FINGER SPARINGLY TO VAGINAL AREA DAILY]
     Route: 067
     Dates: start: 2017
  4. PREMARIN [Suspect]
     Active Substance: ESTROGENS, CONJUGATED
     Indication: URETHRAL DISORDER

REACTIONS (9)
  - Cerebrovascular accident [Not Recovered/Not Resolved]
  - Wrong technique in product usage process [Unknown]
  - Weight increased [Recovered/Resolved]
  - Product use issue [Unknown]
  - Bladder prolapse [Unknown]
  - Alopecia [Unknown]
  - Vaginal cyst [Unknown]
  - Product use in unapproved indication [Unknown]
  - Road traffic accident [Unknown]

NARRATIVE: CASE EVENT DATE: 1983
